FAERS Safety Report 22347102 (Version 2)
Quarter: 2023Q2

REPORT INFORMATION
  Report Type: Spontaneous
  Country: CN (occurrence: CN)
  Receive Date: 20230520
  Receipt Date: 20230626
  Transmission Date: 20230721
  Serious: Yes (Hospitalization)
  Sender: FDA-Public Use
  Company Number: CN-STRIDES ARCOLAB LIMITED-2023SP007296

PATIENT
  Age: 61 Year
  Sex: Female

DRUGS (2)
  1. PEG-3350 AND ELECTROLYTES [Suspect]
     Active Substance: POLYETHYLENE GLYCOL 3350\POTASSIUM CHLORIDE\SODIUM BICARBONATE\SODIUM CHLORIDE\SODIUM SULFATE
     Indication: Bowel preparation
     Dosage: UNK, 6 TIMES (DISSOLVED CONTENT A-24 BAGS AND B-24 BAGS IN WARM WATER 3000ML AND THEN TOOK 500ML PER
     Route: 048
  2. PEG-3350 AND ELECTROLYTES [Suspect]
     Active Substance: POLYETHYLENE GLYCOL 3350\POTASSIUM CHLORIDE\SODIUM BICARBONATE\SODIUM CHLORIDE\SODIUM SULFATE
     Indication: Colonoscopy

REACTIONS (4)
  - Metabolic acidosis [Recovered/Resolved]
  - Hyponatraemic encephalopathy [Recovered/Resolved]
  - Electrolyte imbalance [Recovered/Resolved]
  - Seizure [Recovered/Resolved]
